FAERS Safety Report 15948857 (Version 1)
Quarter: 2019Q1

REPORT INFORMATION
  Report Type: Report from Study
  Country: IT (occurrence: IT)
  Receive Date: 20190212
  Receipt Date: 20190212
  Transmission Date: 20190417
  Serious: Yes (Other)
  Sender: FDA-Public Use
  Company Number: IT-ACCORD-106351

PATIENT
  Age: 78 Year
  Sex: Male
  Weight: 83 kg

DRUGS (3)
  1. FLUOROURACIL. [Suspect]
     Active Substance: FLUOROURACIL
     Indication: OESOPHAGEAL SQUAMOUS CELL CARCINOMA
     Route: 041
  2. CHOLINE THEOPHYLLINATE/THEOPHYLLINE/THEOPHYLLINE CALCIUM AMINOACET/THEOPHYLLINE MONOETHANOLAMINE/THE [Concomitant]
     Route: 048
  3. FUROSEMIDE. [Concomitant]
     Active Substance: FUROSEMIDE
     Route: 048

REACTIONS (1)
  - Extravasation [Recovering/Resolving]

NARRATIVE: CASE EVENT DATE: 20180418
